FAERS Safety Report 21552525 (Version 1)
Quarter: 2022Q4

REPORT INFORMATION
  Report Type: Spontaneous
  Country: US (occurrence: US)
  Receive Date: 20221104
  Receipt Date: 20221104
  Transmission Date: 20230112
  Serious: No
  Sender: FDA-Public Use
  Company Number: US-ABBVIE-4151627

PATIENT
  Sex: Female

DRUGS (3)
  1. HUMIRA [Suspect]
     Active Substance: ADALIMUMAB
     Indication: Juvenile idiopathic arthritis
     Dosage: FORM STRENGTH: 40MG
     Route: 058
  2. HUMIRA [Suspect]
     Active Substance: ADALIMUMAB
     Indication: Combined immunodeficiency
  3. HUMIRA [Suspect]
     Active Substance: ADALIMUMAB
     Indication: Polyarteritis nodosa

REACTIONS (2)
  - Off label use [Unknown]
  - Wrong technique in product usage process [Not Recovered/Not Resolved]
